FAERS Safety Report 10271017 (Version 1)
Quarter: 2014Q1

REPORT INFORMATION
  Report Type: Spontaneous
  Country: US (occurrence: None)
  Receive Date: 20140306
  Receipt Date: 20140306
  Transmission Date: 20141002
  Serious: Yes (Hospitalization)
  Sender: FDA-Public Use
  Company Number: 163-21880-13082519

PATIENT
  Age: 64 Year
  Sex: Male

DRUGS (17)
  1. REVLIMID (LENALIDOMIDE) (15 MILLIGRAM, CAPSULES) [Suspect]
     Indication: PLASMA CELL MYELOMA
     Dosage: 15 MG, 21 IN 21 D, PO
     Route: 048
     Dates: start: 20120127
  2. BABY ASPIRIN (ACETYLSALICYLIC ACID) (UNKNOWN) [Concomitant]
  3. LIDODERM (LIDOCAINE) (UNKNOWN) [Concomitant]
  4. MLTIVITAMINS (MULTIVITAMINS) (UNKNOWN) [Concomitant]
  5. ZOMETA (ZOLEDRONIC ACID) (UNKNOWN) [Concomitant]
  6. CALCIUM 500 + VITAMIN D3 (UNKNOWN) [Concomitant]
  7. ACYCLOVIR (ACICLOVIR) (UNKNOWN) [Concomitant]
  8. BIAXIN (CLARITHROMYCIN) (UNKNOWN) [Concomitant]
  9. DEXAMETHASONE (DEXAMETHASONE) (UNKNOWN) [Concomitant]
  10. VESICARE (SOLIFENANCIN SUCCINATE) (UNKNOWN) [Concomitant]
  11. VITAMIN D2 (ERGOCALCIFEROL) (UNKNOWN) [Concomitant]
  12. RA VITAMIN B12 (UNKNOWN)? [Concomitant]
  13. VITAMIN C (ASCORBIC ACID) (UNKNOWN) [Concomitant]
  14. ATIVAN (LORAZEPAM) (UNKNOWN) [Concomitant]
  15. TYLENOL EXTRA STRENGTH (PARACETAMOL) (UNKNOWN)? [Concomitant]
  16. MAGNESIUM (MAGNESIUM) (UNKNOWN) [Concomitant]
  17. OMEGA 3 (FISH OIL) (UNKNOWN) [Concomitant]

REACTIONS (4)
  - Appendicitis perforated [None]
  - Musculoskeletal chest pain [None]
  - Musculoskeletal chest pain [None]
  - Muscle spasms [None]
